FAERS Safety Report 7333672-2 (Version None)
Quarter: 2011Q1

REPORT INFORMATION
  Report Type: 
  Country: None (occurrence: None)
  Receive Date: 20110306
  Receipt Date: 20110222
  Transmission Date: 20110831
  Serious: Yes (Other)
  Sender: FDA-Public Use
  Company Number: US-ELI_LILLY_AND_COMPANY-US201102006688

PATIENT
  Sex: Female

DRUGS (13)
  1. BETOPTIC [Concomitant]
     Dosage: 1 GTT, EACH MORNING
  2. ENSURE                             /06184901/ [Concomitant]
     Dosage: UNK, 2/W
  3. FOSAMAX [Concomitant]
     Dosage: 10 MG, UNK
     Dates: start: 19960220, end: 20090430
  4. FOSAMAX [Concomitant]
     Dosage: 10 MG, UNK
     Dates: start: 20090801, end: 20100421
  5. OSTEO BI-FLEX [Concomitant]
  6. MULTIVITAMIN [Concomitant]
  7. LOVAZA [Concomitant]
  8. ERYTHROMYCIN [Concomitant]
     Indication: PROPHYLAXIS
  9. Z-BEC [Concomitant]
  10. VITAMIN D [Concomitant]
     Dosage: 1000 MG, UNK
  11. CALAN [Concomitant]
     Dosage: 90 MG, DAILY (1/D)
  12. CITRACAL + D [Concomitant]
  13. EVISTA [Suspect]
     Indication: OSTEOPOROSIS
     Dosage: 60 MG, DAILY (1/D)
     Dates: start: 19980728

REACTIONS (5)
  - ARTHRITIS [None]
  - ATRIAL FIBRILLATION [None]
  - OEDEMA PERIPHERAL [None]
  - HEART RATE IRREGULAR [None]
  - FEELING HOT [None]
